FAERS Safety Report 15106730 (Version 3)
Quarter: 2019Q1

REPORT INFORMATION
  Report Type: Report from Study
  Country: US (occurrence: US)
  Receive Date: 20180704
  Receipt Date: 20190115
  Transmission Date: 20190417
  Serious: No
  Sender: FDA-Public Use
  Company Number: US-SA-2018SA175322

PATIENT
  Age: 64 Year
  Sex: Female

DRUGS (5)
  1. DUPILUMAB [Suspect]
     Active Substance: DUPILUMAB
     Dosage: 300 MG, QOW
     Dates: start: 201804
  2. DUPILUMAB [Suspect]
     Active Substance: DUPILUMAB
     Dosage: 600 UNK
     Route: 058
     Dates: start: 20180701, end: 20180701
  3. DUPILUMAB [Suspect]
     Active Substance: DUPILUMAB
     Indication: DERMATITIS ATOPIC
     Dosage: 600 MG, 1X
     Dates: start: 201804, end: 201804
  4. DUPILUMAB [Suspect]
     Active Substance: DUPILUMAB
     Dosage: 300 MG, QOW
     Route: 058
     Dates: start: 20180606, end: 201807
  5. DUPILUMAB [Suspect]
     Active Substance: DUPILUMAB
     Dosage: 300 MG, QOW
     Route: 058
     Dates: start: 20180715, end: 201808

REACTIONS (9)
  - Hypersensitivity [Unknown]
  - Rash pruritic [Not Recovered/Not Resolved]
  - Dermatitis atopic [Not Recovered/Not Resolved]
  - Fatigue [Recovered/Resolved]
  - Pruritus [Unknown]
  - Rash [Unknown]
  - Vision blurred [Recovered/Resolved]
  - Erythema [Unknown]
  - Injection site pain [Recovered/Resolved]

NARRATIVE: CASE EVENT DATE: 201806
